FAERS Safety Report 4422736-9 (Version None)
Quarter: 2004Q3

REPORT INFORMATION
  Report Type: 
  Country: None (occurrence: None)
  Receive Date: 20040713
  Receipt Date: 20040510
  Transmission Date: 20050211
  Serious: No
  Sender: FDA-Public Use
  Company Number: PHEH2004US05133

PATIENT
  Age: 10 Year
  Sex: Female

DRUGS (3)
  1. ELIDEL [Suspect]
     Indication: ECZEMA
     Dosage: ONCE/SINGLE, TOPICAL
     Route: 061
     Dates: start: 20040509, end: 20040509
  2. SINGULAIR [Concomitant]
  3. ELAVIL [Concomitant]

REACTIONS (4)
  - APPLICATION SITE URTICARIA [None]
  - ASTHMA [None]
  - CHEST PAIN [None]
  - PEAK EXPIRATORY FLOW RATE DECREASED [None]
